FAERS Safety Report 25403844 (Version 2)
Quarter: 2025Q2

REPORT INFORMATION
  Report Type: Report from Study
  Country: CA (occurrence: CA)
  Receive Date: 20250606
  Receipt Date: 20250611
  Transmission Date: 20250717
  Serious: Yes (Hospitalization)
  Sender: ABBVIE
  Company Number: CA-ABBVIE-6309780

PATIENT
  Age: 39 Year
  Sex: Male

DRUGS (7)
  1. RINVOQ [Suspect]
     Active Substance: UPADACITINIB
     Indication: Colitis ulcerative
     Dosage: FORM STRENGTH 45 MG?FOR 8 WEEKS?LAST ADMIN DATE: 2025
     Route: 048
     Dates: start: 20250325
  2. RINVOQ [Suspect]
     Active Substance: UPADACITINIB
     Indication: Colitis ulcerative
     Dosage: FIRST ADMIN DATE: 2025
     Route: 048
  3. VITAMIN D3 [Concomitant]
     Active Substance: CHOLECALCIFEROL
     Indication: Product used for unknown indication
     Dosage: 1000 UNIT
     Route: 048
     Dates: start: 20250503
  4. SULFAMETHOXAZOLE\TRIMETHOPRIM [Concomitant]
     Active Substance: SULFAMETHOXAZOLE\TRIMETHOPRIM
     Indication: Product used for unknown indication
     Dosage: 800 MG - 160 MG PER TABLET?WHILE ON PREDNISONE TAPER - DURATION TO BE REVIEWED BY GP AND GI SPECI...
     Route: 048
     Dates: start: 20250503
  5. PREDNISONE [Concomitant]
     Active Substance: PREDNISONE
     Indication: Product used for unknown indication
     Dosage: 5 MG TABLET TAKE 8 TABLETS (40 MG TOTAL) BY MOUTH ONE (1) TIME PER DAY WITH?BREAKFAST FOR 5 DAYS,...
     Route: 048
     Dates: start: 20250503
  6. MESALAMINE [Concomitant]
     Active Substance: MESALAMINE
     Indication: Product used for unknown indication
     Dosage: MESALAZINE, DELAYED RELEASE (MEZAVANT) WITH BREAKFAST
     Route: 048
     Dates: start: 20250503
  7. MESALAMINE [Concomitant]
     Active Substance: MESALAMINE
     Indication: Product used for unknown indication
     Dosage: MESALAZINE, DELAYED RELEASE (MEZAVANT) WITH BREAKFAST
     Route: 048

REACTIONS (4)
  - Faecal calprotectin increased [Recovered/Resolved]
  - Colitis ulcerative [Not Recovered/Not Resolved]
  - Weight decreased [Recovered/Resolved]
  - Tooth extraction [Unknown]

NARRATIVE: CASE EVENT DATE: 20250101
